FAERS Safety Report 17729158 (Version 3)
Quarter: 2020Q2

REPORT INFORMATION
  Report Type: Report from Study
  Country: IN (occurrence: IN)
  Receive Date: 20200430
  Receipt Date: 20200528
  Transmission Date: 20200714
  Serious: Yes (Other)
  Sender: FDA-Public Use
  Company Number: NVSC2019IN085583

PATIENT
  Age: 42 Year
  Sex: Male
  Weight: 74.5 kg

DRUGS (3)
  1. ESOGRESS [Concomitant]
     Indication: PRODUCT USED FOR UNKNOWN INDICATION
     Dosage: 1 DF, QD (1-0-0)
     Route: 048
  2. GALVUS MET [Suspect]
     Active Substance: METFORMIN HYDROCHLORIDE\VILDAGLIPTIN
     Indication: DIABETES MELLITUS
     Dosage: 1 DF, QD (0-0-1), SINCE 8-10 YEARS
     Route: 048
  3. RIOMET [Concomitant]
     Active Substance: METFORMIN HYDROCHLORIDE
     Indication: DIABETES MELLITUS
     Dosage: 1 DF, QD (1-0-0)
     Route: 048

REACTIONS (8)
  - Chest pain [Unknown]
  - Gastric ulcer [Unknown]
  - Fatigue [Unknown]
  - Weight increased [Unknown]
  - Throat irritation [Unknown]
  - Somnolence [Unknown]
  - Sleep disorder [Unknown]
  - Hyperglycaemia [Unknown]

NARRATIVE: CASE EVENT DATE: 20200104
